FAERS Safety Report 6100778-5 (Version None)
Quarter: 2009Q1

REPORT INFORMATION
  Report Type: 
  Country: None (occurrence: None)
  Receive Date: 20090303
  Receipt Date: 20090223
  Transmission Date: 20090719
  Serious: Yes (Hospitalization)
  Sender: FDA-Public Use
  Company Number: FR-ASTRAZENECA-2008CG01802

PATIENT
  Age: 3 Week
  Sex: Male
  Weight: 3.2 kg

DRUGS (4)
  1. MOPRAL [Suspect]
     Indication: THROMBOCYTOPENIA
     Route: 048
     Dates: start: 20081001, end: 20081201
  2. FERROSTRANE [Concomitant]
  3. FOLIC ACID [Concomitant]
  4. VITAMIN K [Concomitant]

REACTIONS (2)
  - MELAENA [None]
  - NEUTROPENIA [None]
